FAERS Safety Report 9391319 (Version 2)
Quarter: 2013Q3

REPORT INFORMATION
  Report Type: Spontaneous
  Country: BE (occurrence: BE)
  Receive Date: 20130709
  Receipt Date: 20130802
  Transmission Date: 20140515
  Serious: Yes (Death, Hospitalization)
  Sender: FDA-Public Use
  Company Number: BE-B.I. PHARMACEUTICALS,INC./RIDGEFIELD-2013-BL-00333BL

PATIENT
  Sex: Female
  Weight: 40 kg

DRUGS (7)
  1. TRAJENTA [Suspect]
     Indication: TYPE 2 DIABETES MELLITUS
  2. MINITRAN [Concomitant]
  3. CARDIOASPIRINE [Concomitant]
  4. ALDACTONE [Concomitant]
  5. DIOVANE [Concomitant]
  6. TORREM [Concomitant]
  7. OMEPRAZOLE [Concomitant]

REACTIONS (3)
  - Acute pulmonary oedema [Fatal]
  - General physical health deterioration [Fatal]
  - Renal failure [Unknown]
